FAERS Safety Report 7671828-X (Version None)
Quarter: 2011Q3

REPORT INFORMATION
  Report Type: 
  Country: None (occurrence: None)
  Receive Date: 20110809
  Receipt Date: 20110803
  Transmission Date: 20111222
  Serious: Yes (Hospitalization)
  Sender: FDA-Public Use
  Company Number: CO-ROCHE-794496

PATIENT
  Sex: Male

DRUGS (4)
  1. OMEPRAZOLE [Concomitant]
     Indication: PROPHYLAXIS
     Dosage: FREQ DAILY
     Route: 048
  2. ENALAPRIL MALEATE [Concomitant]
     Indication: HYPERTENSION
     Dosage: FREQ DAILY
     Route: 048
  3. PREDNISOLONA [Concomitant]
     Indication: IMMUNOSUPPRESSION
     Route: 048
  4. MYCOPHENOLATE MOFETIL [Suspect]
     Dosage: FREQUENCY DAILY
     Route: 048
     Dates: start: 20101020

REACTIONS (1)
  - NEPHRITIS [None]
